FAERS Safety Report 20230245 (Version 1)
Quarter: 2021Q4

REPORT INFORMATION
  Report Type: Spontaneous
  Country: PL (occurrence: PL)
  Receive Date: 20211226
  Receipt Date: 20211226
  Transmission Date: 20220303
  Serious: Yes (Death, Other)
  Sender: FDA-Public Use
  Company Number: None

PATIENT
  Age: 3 Year
  Sex: Male

DRUGS (6)
  1. CYCLOPHOSPHAMIDE [Suspect]
     Active Substance: CYCLOPHOSPHAMIDE
     Indication: Product used for unknown indication
     Route: 065
  2. ARRANON [Suspect]
     Active Substance: NELARABINE
     Indication: Acute lymphocytic leukaemia
     Route: 065
     Dates: start: 20140905, end: 20140909
  3. ETOPOPHOS [Suspect]
     Active Substance: ETOPOSIDE PHOSPHATE
     Indication: Product used for unknown indication
     Route: 065
  4. BORTEZOMIB [Suspect]
     Active Substance: BORTEZOMIB
     Indication: Product used for unknown indication
     Dosage: (03 AND 04 CYCLE)
     Route: 065
     Dates: start: 20141107, end: 20141114
  5. BORTEZOMIB [Suspect]
     Active Substance: BORTEZOMIB
     Dosage: (WEEK 05 CYCLE)
     Route: 065
     Dates: start: 20141120, end: 20141125
  6. BORTEZOMIB [Suspect]
     Active Substance: BORTEZOMIB
     Route: 065

REACTIONS (7)
  - Multiple organ dysfunction syndrome [Fatal]
  - Electrolyte imbalance [Unknown]
  - Malnutrition [Recovering/Resolving]
  - Inflammatory marker increased [Unknown]
  - Bone marrow failure [Recovering/Resolving]
  - Sepsis [Recovering/Resolving]
  - Diarrhoea [Unknown]

NARRATIVE: CASE EVENT DATE: 20140926
